FAERS Safety Report 19470913 (Version 2)
Quarter: 2021Q2

REPORT INFORMATION
  Report Type: Spontaneous
  Country: US (occurrence: US)
  Receive Date: 20210629
  Receipt Date: 20210629
  Transmission Date: 20210717
  Serious: No
  Sender: FDA-Public Use
  Company Number: US-ALLERGAN-2115819US

PATIENT
  Sex: Female

DRUGS (2)
  1. DURYSTA [Suspect]
     Active Substance: BIMATOPROST
     Indication: PRODUCT USED FOR UNKNOWN INDICATION
     Dosage: 0.01 MG, SINGLE
     Route: 031
     Dates: start: 20210205, end: 20210205
  2. DURYSTA [Suspect]
     Active Substance: BIMATOPROST
     Indication: PRODUCT USED FOR UNKNOWN INDICATION
     Dosage: 0.01 MG, SINGLE
     Route: 031
     Dates: start: 20210219, end: 20210219

REACTIONS (1)
  - Iritis [Not Recovered/Not Resolved]
